FAERS Safety Report 8173147-4 (Version None)
Quarter: 2012Q1

REPORT INFORMATION
  Report Type: 
  Country: None (occurrence: None)
  Receive Date: 20120229
  Receipt Date: 20110311
  Transmission Date: 20120608
  Serious: Yes (Hospitalization)
  Sender: FDA-Public Use
  Company Number: US-GLAXOSMITHKLINE-A0917813A

PATIENT
  Age: 33 Year
  Sex: Female

DRUGS (7)
  1. AMITRIPTYLINE HCL [Concomitant]
  2. IMITREX [Suspect]
     Route: 048
     Dates: start: 19960101
  3. NUBAIN [Suspect]
     Indication: MIGRAINE
  4. DEMEROL [Suspect]
     Indication: MIGRAINE
  5. TOPAMAX [Concomitant]
  6. NORTRIPTYLINE HCL [Concomitant]
  7. IMITREX [Suspect]
     Indication: MIGRAINE
     Dosage: 6MG AS REQUIRED
     Route: 058
     Dates: start: 19930101

REACTIONS (2)
  - DRUG INEFFECTIVE [None]
  - MIGRAINE [None]
